FAERS Safety Report 7458895-3 (Version None)
Quarter: 2011Q2

REPORT INFORMATION
  Report Type: 
  Country: None (occurrence: None)
  Receive Date: 20110504
  Receipt Date: 20110420
  Transmission Date: 20111010
  Serious: Yes (Hospitalization)
  Sender: FDA-Public Use
  Company Number: CA-JNJFOC-20110409774

PATIENT
  Age: 45 Year
  Sex: Male
  Weight: 86.5 kg

DRUGS (3)
  1. REMICADE [Suspect]
     Indication: CROHN'S DISEASE
     Route: 042
  2. SLOW-K [Concomitant]
  3. PREDNISONE [Concomitant]

REACTIONS (2)
  - DIARRHOEA [None]
  - VOMITING [None]
